FAERS Safety Report 7288927-7 (Version None)
Quarter: 2011Q1

REPORT INFORMATION
  Report Type: 
  Country: None (occurrence: None)
  Receive Date: 20110211
  Receipt Date: 20110203
  Transmission Date: 20110831
  Serious: Yes (Other)
  Sender: FDA-Public Use
  Company Number: PHEH2008US07076

PATIENT
  Sex: Female

DRUGS (15)
  1. VITAMIN B-12 [Concomitant]
     Dosage: 1000 MCG / 1 X MONTH
  2. CICLOPIROX [Concomitant]
     Dosage: UNK / DAILY
  3. ALLEGRA [Concomitant]
     Dosage: UNK
  4. QUETIAPINE [Concomitant]
     Dosage: 25 MG / HS
     Route: 048
  5. ZOLOFT [Concomitant]
     Dosage: 100 MG / QD
  6. FLUTICASONE PROPIONATE [Concomitant]
     Dosage: UNK
     Route: 045
  7. FOLIC ACID [Concomitant]
     Dosage: 1 MG
  8. FEMARA [Concomitant]
     Dosage: 2.5 MG / QD
     Route: 048
  9. TRAZODONE [Concomitant]
     Dosage: 50 MG / HS
     Route: 048
  10. ZOMETA [Suspect]
     Indication: BREAST CANCER METASTATIC
     Dosage: 4 MG, UNK
     Route: 042
     Dates: start: 20040101, end: 20061030
  11. TAMOXIFEN CITRATE [Concomitant]
  12. IBUPROFEN [Concomitant]
     Dosage: 800 MG / TID PRN
     Route: 048
  13. ACETAMINOPHEN AND HYDROCODONE BITARTRATE [Concomitant]
     Dosage: 5 MG/500 / Q4-6HRS PRN
     Route: 048
  14. AMOXICILLIN [Concomitant]
     Dosage: 875 MG / BID
  15. CETIRIZINE [Concomitant]
     Dosage: 10 MG / QD
     Route: 048

REACTIONS (43)
  - MULTIPLE SCLEROSIS [None]
  - PERIODONTITIS [None]
  - ATELECTASIS [None]
  - ONYCHOMYCOSIS [None]
  - OSTEOLYSIS [None]
  - OSTEOARTHRITIS [None]
  - SCAR [None]
  - PHYSICAL DISABILITY [None]
  - SPINAL OSTEOARTHRITIS [None]
  - ATROPHY [None]
  - OSTEOPENIA [None]
  - METASTATIC NEOPLASM [None]
  - HEPATIC LESION [None]
  - EMOTIONAL DISTRESS [None]
  - HERPES ZOSTER [None]
  - POLYNEUROPATHY [None]
  - RIB FRACTURE [None]
  - TOOTH ABSCESS [None]
  - RASH VESICULAR [None]
  - INTESTINAL FUNCTIONAL DISORDER [None]
  - AMNESIA [None]
  - ICHTHYOSIS [None]
  - GAIT DISTURBANCE [None]
  - ARTHRALGIA [None]
  - HEADACHE [None]
  - PAIN [None]
  - OROANTRAL FISTULA [None]
  - SPONDYLOLISTHESIS [None]
  - BACK PAIN [None]
  - TOOTH DISORDER [None]
  - VERTEBRAL WEDGING [None]
  - DEPRESSION [None]
  - SKIN FISSURES [None]
  - DERMATOPHYTOSIS [None]
  - MUSCULAR WEAKNESS [None]
  - OSTEONECROSIS OF JAW [None]
  - ANXIETY [None]
  - DENTAL CARIES [None]
  - GINGIVITIS [None]
  - URINARY INCONTINENCE [None]
  - SACROILIITIS [None]
  - KYPHOSCOLIOSIS [None]
  - COMPRESSION FRACTURE [None]
